FAERS Safety Report 12315215 (Version 2)
Quarter: 2016Q2

REPORT INFORMATION
  Report Type: Spontaneous
  Country: JP (occurrence: JP)
  Receive Date: 20160428
  Receipt Date: 20160518
  Transmission Date: 20160815
  Serious: Yes (Hospitalization)
  Sender: FDA-Public Use
  Company Number: JP-PFIZER INC-2016231778

PATIENT
  Age: 74 Year
  Sex: Male

DRUGS (5)
  1. JUVELA [Concomitant]
     Active Substance: .ALPHA.-TOCOPHEROL\RETINOL
     Dosage: 200 MG, 3X/DAY
     Route: 048
  2. MICAMLO [Concomitant]
     Active Substance: AMLODIPINE BESYLATE\TELMISARTAN
     Indication: HYPERTENSION
     Dosage: UNK
     Route: 048
  3. LYRICA [Suspect]
     Active Substance: PREGABALIN
     Indication: HERNIA
     Dosage: 50 MG, 2X/DAY
     Route: 048
     Dates: start: 20160229, end: 20160331
  4. SPIRIVA [Concomitant]
     Active Substance: TIOTROPIUM BROMIDE MONOHYDRATE
     Dosage: 5 MG, UNK
     Route: 055
     Dates: start: 20160331
  5. CALONAL [Concomitant]
     Active Substance: ACETAMINOPHEN
     Indication: HERNIA
     Dosage: 400 MG, 3X/DAY
     Route: 048
     Dates: start: 20160229

REACTIONS (2)
  - Interstitial lung disease [Recovering/Resolving]
  - Condition aggravated [Recovering/Resolving]

NARRATIVE: CASE EVENT DATE: 20160331
